FAERS Safety Report 4393982-8 (Version None)
Quarter: 2004Q3

REPORT INFORMATION
  Report Type: 
  Country: None (occurrence: None)
  Receive Date: 20040702
  Receipt Date: 20040628
  Transmission Date: 20050211
  Serious: Yes (Hospitalization)
  Sender: FDA-Public Use
  Company Number: 200418705BWH

PATIENT
  Age: 49 Year
  Sex: Female

DRUGS (8)
  1. CIPRO [Suspect]
     Dosage: 500 MG
     Dates: start: 20030101, end: 20030119
  2. ESKALITH [Suspect]
     Indication: SCHIZOPHRENIA, PARANOID TYPE
     Dosage: 450 MG , BID, ORAL
     Route: 048
     Dates: start: 19840101
  3. ADVAIR DISKUS 100/50 [Suspect]
     Indication: INFLUENZA
     Dosage: 250/50 UG , BID, RESPIRATORY (INHALATION)
     Route: 055
     Dates: start: 20030101, end: 20030117
  4. ZYRTEC [Suspect]
     Dosage: 10 MG
     Dates: start: 20030101, end: 20030119
  5. NAVANE [Concomitant]
  6. BENZTROPINE MESYLATE [Concomitant]
  7. RISPERIDONE [Concomitant]
  8. LOTENSIN [Concomitant]

REACTIONS (8)
  - DROOLING [None]
  - INFLUENZA [None]
  - MOVEMENT DISORDER [None]
  - RESPIRATORY DISORDER [None]
  - SKIN INFECTION [None]
  - SOMNOLENCE [None]
  - THERAPEUTIC AGENT TOXICITY [None]
  - TREMOR [None]
